FAERS Safety Report 8866397 (Version 3)
Quarter: 2012Q4

REPORT INFORMATION
  Report Type: 
  Country: US (occurrence: US)
  Receive Date: 20121025
  Receipt Date: 20121214
  Transmission Date: 20130627
  Serious: Yes (Hospitalization)
  Sender: FDA-Public Use
  Company Number: US-ASTRAZENECA-2012SE79921

PATIENT
  Age: 68 Year
  Sex: Female

DRUGS (1)
  1. NEXIUM [Suspect]
     Route: 048

REACTIONS (6)
  - Injury [Unknown]
  - Head injury [Unknown]
  - Musculoskeletal disorder [Unknown]
  - Fall [Unknown]
  - Rotator cuff syndrome [Unknown]
  - Coordination abnormal [Unknown]
